FAERS Safety Report 18466430 (Version 2)
Quarter: 2022Q2

REPORT INFORMATION
  Report Type: Spontaneous
  Country: IE (occurrence: None)
  Receive Date: 20201104
  Receipt Date: 20220507
  Transmission Date: 20220720
  Serious: Yes (Other)
  Sender: FDA-Public Use
  Company Number: IE-ROCHE-2705281

PATIENT
  Sex: Female

DRUGS (3)
  1. HERCEPTIN [Suspect]
     Active Substance: TRASTUZUMAB
     Indication: Breast cancer
     Dosage: STARTED BETWEEN 2014-2015 AFTER LUMPECTOMY SURGERY ON LEFT BREAST
     Route: 065
  2. HERCEPTIN [Suspect]
     Active Substance: TRASTUZUMAB
     Indication: Breast cancer
     Dosage: 25 ROUNDS FINISHED, 18 MONTHS IN TOTAL
     Route: 042
  3. TAMOXIFEN [Concomitant]
     Active Substance: TAMOXIFEN

REACTIONS (3)
  - Breast cancer [Unknown]
  - Maternal exposure during pregnancy [Unknown]
  - Alopecia [Unknown]
